FAERS Safety Report 8192944-2 (Version None)
Quarter: 2012Q1

REPORT INFORMATION
  Report Type: 
  Country: None (occurrence: None)
  Receive Date: 20120308
  Receipt Date: 20120229
  Transmission Date: 20120608
  Serious: Yes (Hospitalization)
  Sender: FDA-Public Use
  Company Number: FR-BRISTOL-MYERS SQUIBB COMPANY-16428963

PATIENT
  Age: 58 Year
  Sex: Female

DRUGS (7)
  1. PLAVIX [Concomitant]
  2. DILTIAZEM HCL [Concomitant]
     Dosage: FOR THE LAST 12 YEARS,MONOTILDIEM
  3. ROPINIROLE HYDROCHLORIDE [Concomitant]
  4. HYDREA [Suspect]
     Indication: MYELODYSPLASTIC SYNDROME
     Route: 048
     Dates: start: 20090101
  5. NAFTIDROFURYL [Concomitant]
     Dates: start: 20090101
  6. VERCYTE [Suspect]
     Indication: MYELODYSPLASTIC SYNDROME
     Route: 048
     Dates: start: 19990101, end: 20090101
  7. AMITRIPTYLINE HCL [Concomitant]

REACTIONS (2)
  - PARAESTHESIA [None]
  - NEUROPATHY PERIPHERAL [None]
